FAERS Safety Report 25064893 (Version 14)
Quarter: 2025Q3

REPORT INFORMATION
  Report Type: Spontaneous
  Country: EU (occurrence: EU)
  Receive Date: 20250311
  Receipt Date: 20250825
  Transmission Date: 20251021
  Serious: Yes (Hospitalization, Other)
  Sender: SANDOZ
  Company Number: EU-002147023-NVSC2025DE036796

PATIENT
  Age: 82 Year
  Sex: Female
  Weight: 56 kg

DRUGS (355)
  1. AMIODARONE HYDROCHLORIDE [Suspect]
     Active Substance: AMIODARONE HYDROCHLORIDE
     Indication: Product used for unknown indication
     Dosage: 200 MG, QD
     Route: 065
  2. AMIODARONE HYDROCHLORIDE [Suspect]
     Active Substance: AMIODARONE HYDROCHLORIDE
     Indication: Product used for unknown indication
     Route: 065
  3. AMIODARONE HYDROCHLORIDE [Suspect]
     Active Substance: AMIODARONE HYDROCHLORIDE
     Route: 065
  4. AMIODARONE HYDROCHLORIDE [Suspect]
     Active Substance: AMIODARONE HYDROCHLORIDE
     Route: 065
  5. AMIODARONE HYDROCHLORIDE [Suspect]
     Active Substance: AMIODARONE HYDROCHLORIDE
     Route: 065
  6. AMIODARONE HYDROCHLORIDE [Suspect]
     Active Substance: AMIODARONE HYDROCHLORIDE
     Route: 065
  7. AMIODARONE HYDROCHLORIDE [Suspect]
     Active Substance: AMIODARONE HYDROCHLORIDE
     Route: 065
  8. AMIODARONE HYDROCHLORIDE [Suspect]
     Active Substance: AMIODARONE HYDROCHLORIDE
     Route: 065
  9. ASPIRIN [Suspect]
     Active Substance: ASPIRIN
     Indication: Product used for unknown indication
     Route: 065
  10. ASPIRIN [Suspect]
     Active Substance: ASPIRIN
     Indication: Product used for unknown indication
  11. CLOPIDOGREL BISULFATE [Suspect]
     Active Substance: CLOPIDOGREL BISULFATE
     Indication: Product used for unknown indication
     Route: 048
     Dates: start: 20170124, end: 20170124
  12. CLOPIDOGREL BISULFATE [Suspect]
     Active Substance: CLOPIDOGREL BISULFATE
     Route: 048
  13. CLOPIDOGREL BISULFATE [Suspect]
     Active Substance: CLOPIDOGREL BISULFATE
     Route: 048
  14. ASPIRIN [Suspect]
     Active Substance: ASPIRIN
     Indication: Product used for unknown indication
     Route: 065
  15. ASPIRIN [Suspect]
     Active Substance: ASPIRIN
     Route: 065
  16. BISOPROLOL FUMARATE [Suspect]
     Active Substance: BISOPROLOL FUMARATE
     Indication: Product used for unknown indication
     Dosage: 0.5 MG, QD
     Route: 065
     Dates: start: 2016
  17. BISOPROLOL FUMARATE [Suspect]
     Active Substance: BISOPROLOL FUMARATE
     Indication: Product used for unknown indication
     Dosage: 5 MG, QD
     Route: 065
     Dates: start: 2016
  18. BISOPROLOL FUMARATE [Suspect]
     Active Substance: BISOPROLOL FUMARATE
     Dosage: 5 MG, QD
     Route: 065
     Dates: start: 2016
  19. BISOPROLOL FUMARATE [Suspect]
     Active Substance: BISOPROLOL FUMARATE
     Dosage: 5 MG, QD
     Route: 065
     Dates: start: 2016
  20. LACTULOSE [Suspect]
     Active Substance: LACTULOSE
     Dosage: UNK, QD
     Route: 065
  21. LACTULOSE [Suspect]
     Active Substance: LACTULOSE
     Dosage: UNK, QD
     Route: 065
  22. LACTULOSE [Suspect]
     Active Substance: LACTULOSE
     Indication: Product used for unknown indication
     Route: 065
     Dates: start: 20170124, end: 20170124
  23. LACTULOSE [Suspect]
     Active Substance: LACTULOSE
     Route: 065
  24. LACTULOSE [Suspect]
     Active Substance: LACTULOSE
     Route: 065
  25. CLOPIDOGREL [Suspect]
     Active Substance: CLOPIDOGREL BISULFATE
     Indication: Product used for unknown indication
     Route: 048
     Dates: start: 20170124
  26. CLOPIDOGREL [Suspect]
     Active Substance: CLOPIDOGREL BISULFATE
     Route: 048
     Dates: start: 20170124
  27. CLOPIDOGREL [Suspect]
     Active Substance: CLOPIDOGREL BISULFATE
     Route: 048
     Dates: start: 20170124
  28. CLOPIDOGREL [Suspect]
     Active Substance: CLOPIDOGREL BISULFATE
     Route: 048
     Dates: start: 20170124
  29. CLOPIDOGREL [Suspect]
     Active Substance: CLOPIDOGREL BISULFATE
     Route: 048
     Dates: start: 20170124
  30. CLOPIDOGREL [Suspect]
     Active Substance: CLOPIDOGREL BISULFATE
     Route: 048
     Dates: start: 20170124
  31. CLOPIDOGREL [Suspect]
     Active Substance: CLOPIDOGREL BISULFATE
     Route: 048
     Dates: start: 20170124
  32. CLOPIDOGREL [Suspect]
     Active Substance: CLOPIDOGREL BISULFATE
     Route: 048
     Dates: start: 20170124
  33. CLOPIDOGREL [Suspect]
     Active Substance: CLOPIDOGREL BISULFATE
     Route: 048
     Dates: end: 20170124
  34. CLOPIDOGREL [Suspect]
     Active Substance: CLOPIDOGREL BISULFATE
     Route: 048
     Dates: end: 20170124
  35. CLOPIDOGREL [Suspect]
     Active Substance: CLOPIDOGREL BISULFATE
     Indication: Product used for unknown indication
     Route: 065
     Dates: start: 20170124, end: 20170124
  36. CLOPIDOGREL [Suspect]
     Active Substance: CLOPIDOGREL BISULFATE
     Route: 065
  37. CLOPIDOGREL [Suspect]
     Active Substance: CLOPIDOGREL BISULFATE
     Route: 065
  38. CLOPIDOGREL [Suspect]
     Active Substance: CLOPIDOGREL BISULFATE
     Route: 065
  39. CLOPIDOGREL [Suspect]
     Active Substance: CLOPIDOGREL BISULFATE
     Route: 065
  40. CLOPIDOGREL [Suspect]
     Active Substance: CLOPIDOGREL BISULFATE
     Route: 065
  41. CLOPIDOGREL [Suspect]
     Active Substance: CLOPIDOGREL BISULFATE
     Route: 048
     Dates: end: 20170124
  42. CLOPIDOGREL [Suspect]
     Active Substance: CLOPIDOGREL BISULFATE
     Route: 065
  43. CLOPIDOGREL [Suspect]
     Active Substance: CLOPIDOGREL BISULFATE
     Route: 065
  44. CLOPIDOGREL [Suspect]
     Active Substance: CLOPIDOGREL BISULFATE
     Route: 065
  45. CLOPIDOGREL [Suspect]
     Active Substance: CLOPIDOGREL BISULFATE
     Route: 065
  46. CANDESARTAN CILEXETIL\HYDROCHLOROTHIAZIDE [Suspect]
     Active Substance: CANDESARTAN CILEXETIL\HYDROCHLOROTHIAZIDE
     Indication: Product used for unknown indication
     Dosage: 1 DF, QD
     Route: 065
  47. TROSPIUM CHLORIDE [Suspect]
     Active Substance: TROSPIUM CHLORIDE
     Dosage: 15 MG, QD
     Route: 065
     Dates: start: 20170124
  48. TROSPIUM CHLORIDE [Suspect]
     Active Substance: TROSPIUM CHLORIDE
     Indication: Product used for unknown indication
     Route: 065
     Dates: start: 20170124
  49. CERISA [Suspect]
     Active Substance: SULFACETAMIDE SODIUM\SULFUR
     Route: 065
  50. CERISA [Suspect]
     Active Substance: SULFACETAMIDE SODIUM\SULFUR
     Indication: Product used for unknown indication
     Route: 065
  51. DICLOFENAC [Suspect]
     Active Substance: DICLOFENAC
     Dosage: 2 DOSAGE FORM, QD
     Route: 065
  52. DICLOFENAC [Suspect]
     Active Substance: DICLOFENAC
     Indication: Product used for unknown indication
     Route: 065
  53. DICLOFENAC [Suspect]
     Active Substance: DICLOFENAC
     Route: 065
  54. DICLOFENAC SODIUM [Suspect]
     Active Substance: DICLOFENAC SODIUM
     Indication: Product used for unknown indication
     Dosage: 2 DF, QD, FIRST AND LAST DOSE:  2016-10
     Route: 065
     Dates: start: 201610, end: 201610
  55. DICLOFENAC SODIUM [Suspect]
     Active Substance: DICLOFENAC SODIUM
     Indication: Product used for unknown indication
     Dosage: 2 DOSAGE FORM, QD, FIRST AND LAST DOSE: 2016-10
     Route: 065
     Dates: start: 201610, end: 201610
  56. CHOLECALCIFEROL [Suspect]
     Active Substance: CHOLECALCIFEROL
     Indication: Product used for unknown indication
     Dosage: 20000 IU, QW, DAILY DOSE: 20000 IU INTERNATIONAL UNIT(S) EVERY WEEKS
     Route: 065
  57. CHOLECALCIFEROL [Suspect]
     Active Substance: CHOLECALCIFEROL
     Dosage: 20000 IU, QW, DAILY DOSE: 20000 IU INTERNATIONAL UNIT(S) EVERY WEEKS
     Route: 065
  58. FENTANYL [Suspect]
     Active Substance: FENTANYL
     Indication: Product used for unknown indication
     Route: 062
  59. FENTANYL [Suspect]
     Active Substance: FENTANYL
     Indication: Product used for unknown indication
     Route: 065
  60. FENTANYL [Suspect]
     Active Substance: FENTANYL
     Indication: Product used for unknown indication
  61. FENTANYL TRANSDERMAL SYSTEM [Suspect]
     Active Substance: FENTANYL
     Indication: Product used for unknown indication
     Dosage: 75 UG, QH, 75 MICROGRAM/HOUR AND PLASTER CHANGE EVERY 3 DAYS
     Route: 062
  62. FENTANYL TRANSDERMAL SYSTEM [Suspect]
     Active Substance: FENTANYL
     Indication: Product used for unknown indication
     Route: 062
  63. HYDROCHLOROTHIAZIDE\LOSARTAN [Suspect]
     Active Substance: HYDROCHLOROTHIAZIDE\LOSARTAN
     Indication: Product used for unknown indication
     Dosage: 1 DOSAGE FORM, QD (100/25 MG)
     Route: 065
     Dates: start: 2016
  64. HYDROCHLOROTHIAZIDE\LOSARTAN [Suspect]
     Active Substance: HYDROCHLOROTHIAZIDE\LOSARTAN
     Dosage: UNK, QD (100/25 MG)
     Route: 065
     Dates: start: 2016
  65. HUMIRA [Suspect]
     Active Substance: ADALIMUMAB
     Dosage: 1 DF, Q2W
     Route: 058
  66. HUMIRA [Suspect]
     Active Substance: ADALIMUMAB
     Route: 058
     Dates: end: 20160927
  67. HUMIRA [Suspect]
     Active Substance: ADALIMUMAB
     Dosage: 2 DF, QW, 1 DOSAGE FORM, BIW
     Route: 059
     Dates: start: 20161115
  68. HUMIRA [Suspect]
     Active Substance: ADALIMUMAB
     Dosage: 2 DF, QW, 1 DOSAGE FORM, Q2W
     Route: 059
     Dates: start: 20160927
  69. HUMIRA [Suspect]
     Active Substance: ADALIMUMAB
     Dosage: 2 DF, QW, 1 DOSAGE FORM, Q2W
     Route: 059
     Dates: end: 20160927
  70. HUMIRA [Suspect]
     Active Substance: ADALIMUMAB
     Dosage: 4 DF, QW, 2 DOSAGE FORM, BIW
     Route: 059
     Dates: start: 20120111, end: 20160927
  71. HUMIRA [Suspect]
     Active Substance: ADALIMUMAB
     Dosage: 40 MG, QW
     Route: 058
     Dates: end: 20160927
  72. HUMIRA [Suspect]
     Active Substance: ADALIMUMAB
     Dosage: 40 MG, QW
     Route: 059
     Dates: start: 20120111
  73. HUMIRA [Suspect]
     Active Substance: ADALIMUMAB
     Dosage: 40 MG, QW
     Route: 059
     Dates: start: 20161115
  74. HUMIRA [Suspect]
     Active Substance: ADALIMUMAB
     Dosage: 40 MG, QW
     Route: 059
  75. HUMIRA [Suspect]
     Active Substance: ADALIMUMAB
     Dosage: 40 MG, Q2W
     Route: 059
     Dates: start: 20120411, end: 20160927
  76. HUMIRA [Suspect]
     Active Substance: ADALIMUMAB
     Dosage: 40 MILLIGRAM, Q2W
     Route: 065
     Dates: end: 20160927
  77. HUMIRA [Suspect]
     Active Substance: ADALIMUMAB
     Dosage: UNK, QW
     Route: 059
     Dates: start: 20161115
  78. HUMIRA [Suspect]
     Active Substance: ADALIMUMAB
     Dosage: UNK, QW
     Route: 065
     Dates: end: 20160927
  79. HUMIRA [Suspect]
     Active Substance: ADALIMUMAB
     Dosage: UNK, QW
     Route: 065
     Dates: end: 20160927
  80. HUMIRA [Suspect]
     Active Substance: ADALIMUMAB
     Indication: Rheumatoid arthritis
     Route: 059
     Dates: start: 20120411, end: 20160927
  81. HUMIRA [Suspect]
     Active Substance: ADALIMUMAB
     Route: 065
  82. LOSARTAN POTASSIUM [Suspect]
     Active Substance: LOSARTAN POTASSIUM
     Indication: Product used for unknown indication
     Dosage: 1 DF, QD
     Route: 065
  83. LOSARTAN POTASSIUM [Suspect]
     Active Substance: LOSARTAN POTASSIUM
     Dosage: 1 DF, QD
     Route: 065
     Dates: start: 2016
  84. LOSARTAN POTASSIUM [Suspect]
     Active Substance: LOSARTAN POTASSIUM
     Dosage: 1 DF, QD
     Route: 065
  85. LOSARTAN POTASSIUM [Suspect]
     Active Substance: LOSARTAN POTASSIUM
     Dosage: UNK UNK, QD (UNITS: UNKNOWN), DAILY
     Route: 065
     Dates: start: 2016
  86. LOSARTAN POTASSIUM [Suspect]
     Active Substance: LOSARTAN POTASSIUM
     Route: 065
  87. LOSARTAN POTASSIUM [Suspect]
     Active Substance: LOSARTAN POTASSIUM
     Route: 065
  88. EDOXABAN TOSYLATE [Suspect]
     Active Substance: EDOXABAN TOSYLATE
     Dosage: 30 MG, QD, FIRST ADMIN DATE: 2016-09-30
     Route: 065
  89. EDOXABAN TOSYLATE [Suspect]
     Active Substance: EDOXABAN TOSYLATE
     Indication: Atrial fibrillation
     Dosage: 30 MG, QD, DAILY
     Route: 065
     Dates: start: 20160930
  90. EDOXABAN TOSYLATE [Suspect]
     Active Substance: EDOXABAN TOSYLATE
     Dosage: 30 MG, QD, DAILY
     Route: 065
  91. EDOXABAN TOSYLATE [Suspect]
     Active Substance: EDOXABAN TOSYLATE
     Dosage: 30 MG, QD, DAILY
     Route: 065
  92. METOPROLOL SUCCINATE [Suspect]
     Active Substance: METOPROLOL SUCCINATE
     Dosage: 95 MG, QD
     Route: 065
  93. METOPROLOL SUCCINATE [Suspect]
     Active Substance: METOPROLOL SUCCINATE
     Dosage: 95 MILLIGRAM, UNK, FREQUENCY: UNK, FIRST ADMIN DATE: 24 JAN 2017
     Route: 065
  94. METOPROLOL SUCCINATE [Suspect]
     Active Substance: METOPROLOL SUCCINATE
     Indication: Product used for unknown indication
     Route: 065
     Dates: start: 20170124, end: 20170124
  95. METOPROLOL SUCCINATE [Suspect]
     Active Substance: METOPROLOL SUCCINATE
     Indication: Product used for unknown indication
     Route: 065
  96. MOVICOL [Suspect]
     Active Substance: POLYETHYLENE GLYCOL 3350\POTASSIUM CHLORIDE\SODIUM BICARBONATE\SODIUM CHLORIDE
     Indication: Product used for unknown indication
     Route: 065
     Dates: start: 20170124
  97. MOVICOL [Suspect]
     Active Substance: POLYETHYLENE GLYCOL 3350\POTASSIUM CHLORIDE\SODIUM BICARBONATE\SODIUM CHLORIDE
     Route: 065
  98. MOVICOL [Suspect]
     Active Substance: POLYETHYLENE GLYCOL 3350\POTASSIUM CHLORIDE\SODIUM BICARBONATE\SODIUM CHLORIDE
     Route: 065
  99. MOVICOL [Suspect]
     Active Substance: POLYETHYLENE GLYCOL 3350\POTASSIUM CHLORIDE\SODIUM BICARBONATE\SODIUM CHLORIDE
     Route: 065
  100. MOVICOL [Suspect]
     Active Substance: POLYETHYLENE GLYCOL 3350\POTASSIUM CHLORIDE\SODIUM BICARBONATE\SODIUM CHLORIDE
     Route: 065
  101. PANTOPRAZOLE SODIUM [Suspect]
     Active Substance: PANTOPRAZOLE SODIUM
     Indication: Product used for unknown indication
     Dosage: 20 MG, QD
     Route: 065
  102. PANTOPRAZOLE SODIUM [Suspect]
     Active Substance: PANTOPRAZOLE SODIUM
     Dosage: 20 MG, QD
     Route: 065
  103. PANTOPRAZOLE SODIUM [Suspect]
     Active Substance: PANTOPRAZOLE SODIUM
     Dosage: 20 MG, QD
     Route: 065
  104. PANTOPRAZOLE SODIUM [Suspect]
     Active Substance: PANTOPRAZOLE SODIUM
     Indication: Product used for unknown indication
  105. PANTOPRAZOLE [Suspect]
     Active Substance: PANTOPRAZOLE
     Dosage: 20 MG, QD
     Route: 065
  106. PANTOPRAZOLE [Suspect]
     Active Substance: PANTOPRAZOLE
     Dosage: 20 MG, QD
     Route: 065
  107. PANTOPRAZOLE [Suspect]
     Active Substance: PANTOPRAZOLE
     Dosage: 20 MG, QD
     Route: 065
  108. PANTOPRAZOLE [Suspect]
     Active Substance: PANTOPRAZOLE
     Dosage: 20 MG, QD
     Route: 065
  109. PANTOPRAZOLE [Suspect]
     Active Substance: PANTOPRAZOLE
     Indication: Product used for unknown indication
     Route: 065
  110. PREDNISOLONE [Suspect]
     Active Substance: PREDNISOLONE
     Indication: Product used for unknown indication
     Route: 065
  111. SIMVASTATIN [Suspect]
     Active Substance: SIMVASTATIN
     Indication: Product used for unknown indication
     Route: 065
  112. SIMVASTATIN [Suspect]
     Active Substance: SIMVASTATIN
     Route: 065
  113. TROSPIUM CHLORIDE [Suspect]
     Active Substance: TROSPIUM CHLORIDE
     Route: 065
  114. TROSPIUM CHLORIDE [Suspect]
     Active Substance: TROSPIUM CHLORIDE
     Route: 065
  115. TROSPIUM CHLORIDE [Suspect]
     Active Substance: TROSPIUM CHLORIDE
     Dosage: 15 MG, QD
     Route: 065
     Dates: start: 20170124, end: 20170124
  116. TROSPIUM CHLORIDE [Suspect]
     Active Substance: TROSPIUM CHLORIDE
     Dosage: 15 MG, QD
     Route: 065
     Dates: start: 20170124, end: 20170124
  117. TROSPIUM CHLORIDE [Suspect]
     Active Substance: TROSPIUM CHLORIDE
     Dosage: 15 MG, QD
     Route: 065
     Dates: start: 20170124, end: 20170124
  118. TROSPIUM CHLORIDE [Suspect]
     Active Substance: TROSPIUM CHLORIDE
     Indication: Product used for unknown indication
     Dosage: 45 MG, QD, DAILY
     Route: 065
     Dates: start: 20170124, end: 20170124
  119. TROSPIUM CHLORIDE [Suspect]
     Active Substance: TROSPIUM CHLORIDE
     Dosage: 45 MG, QD, DAILY
     Route: 065
     Dates: start: 20170124, end: 20170124
  120. FUROSEMIDE\SPIRONOLACTONE [Suspect]
     Active Substance: FUROSEMIDE\SPIRONOLACTONE
     Indication: Product used for unknown indication
     Dosage: 1 DF, QD, 1X/DAY, 50MG/20MG
     Route: 065
     Dates: start: 201610, end: 201610
  121. FUROSEMIDE\SPIRONOLACTONE [Suspect]
     Active Substance: FUROSEMIDE\SPIRONOLACTONE
     Dosage: UNK UNK, QD (50MG/20MG)
     Route: 065
  122. FUROSEMIDE\SPIRONOLACTONE [Suspect]
     Active Substance: FUROSEMIDE\SPIRONOLACTONE
     Dosage: UNK UNK, QD (50MG/20MG)
     Route: 065
  123. FUROSEMIDE\SPIRONOLACTONE [Suspect]
     Active Substance: FUROSEMIDE\SPIRONOLACTONE
     Route: 065
  124. TORSEMIDE [Suspect]
     Active Substance: TORSEMIDE
     Dosage: 1 DF
     Route: 065
  125. TORSEMIDE [Suspect]
     Active Substance: TORSEMIDE
     Indication: Product used for unknown indication
     Dosage: 15 MG, QD
     Route: 065
     Dates: start: 20170124, end: 20170124
  126. TORSEMIDE [Suspect]
     Active Substance: TORSEMIDE
     Indication: Product used for unknown indication
     Dosage: 45 MG, QD
     Route: 065
     Dates: start: 20170124, end: 20170124
  127. TORSEMIDE [Suspect]
     Active Substance: TORSEMIDE
     Dosage: 5 MG, QD
     Route: 065
     Dates: start: 20170124, end: 20170124
  128. TORSEMIDE [Suspect]
     Active Substance: TORSEMIDE
     Dosage: 5 MG, QD
     Route: 065
  129. TORSEMIDE [Suspect]
     Active Substance: TORSEMIDE
     Dosage: 5 MG, QD
     Route: 065
  130. TORSEMIDE [Suspect]
     Active Substance: TORSEMIDE
     Dosage: 5 MG, QD, FIRST ADMIN DATE: 24 JAN 2017
     Route: 065
  131. TORSEMIDE [Suspect]
     Active Substance: TORSEMIDE
     Indication: Product used for unknown indication
     Dosage: 1 DOSAGE FORM, QD
     Route: 065
  132. TORSEMIDE [Suspect]
     Active Substance: TORSEMIDE
     Dosage: 5 MG, QD, FIRST ADMIN DATE: 2017-01-24
     Route: 065
     Dates: end: 20170124
  133. TORSEMIDE [Suspect]
     Active Substance: TORSEMIDE
     Dosage: 5 MG, QD
     Route: 065
     Dates: start: 20170124, end: 20170124
  134. TORSEMIDE [Suspect]
     Active Substance: TORSEMIDE
     Dosage: UNK UNK, QD ( DOSE: 1, 1X/DAY)
     Route: 065
  135. TORSEMIDE [Suspect]
     Active Substance: TORSEMIDE
     Route: 065
  136. TORSEMIDE [Suspect]
     Active Substance: TORSEMIDE
     Route: 065
  137. VALSARTAN [Suspect]
     Active Substance: VALSARTAN
     Indication: Product used for unknown indication
     Route: 065
  138. VALSARTAN [Suspect]
     Active Substance: VALSARTAN
     Indication: Product used for unknown indication
     Route: 065
  139. VALSARTAN [Suspect]
     Active Substance: VALSARTAN
     Route: 065
  140. VALSARTAN [Suspect]
     Active Substance: VALSARTAN
     Route: 065
  141. DICLOFENAC [Suspect]
     Active Substance: DICLOFENAC
     Dosage: 2 DF, QD
     Route: 065
     Dates: start: 201610, end: 201610
  142. DICLOFENAC [Suspect]
     Active Substance: DICLOFENAC
     Indication: Product used for unknown indication
     Dosage: UNK, QD (2 (UNITS: UNKNOWN), DAILY )
     Route: 065
  143. DICLOFENAC [Suspect]
     Active Substance: DICLOFENAC
     Dosage: UNK, QD
     Route: 065
  144. DICLOFENAC [Suspect]
     Active Substance: DICLOFENAC
     Dosage: UNK, QD
     Route: 065
  145. DICLOFENAC [Suspect]
     Active Substance: DICLOFENAC
     Dosage: UNK, QD
     Route: 065
  146. XIPAMIDE [Suspect]
     Active Substance: XIPAMIDE
     Indication: Product used for unknown indication
     Route: 065
     Dates: start: 20170124, end: 20170124
  147. CORDAREX [Concomitant]
     Active Substance: AMIODARONE
     Indication: Product used for unknown indication
     Dosage: 200 MG, QD
     Route: 065
  148. CORDAREX [Concomitant]
     Active Substance: AMIODARONE
     Dosage: 200 MG, QD
     Route: 065
  149. CORDAREX [Concomitant]
     Active Substance: AMIODARONE
     Dosage: 200 MG, QD
     Route: 065
  150. CORDAREX [Concomitant]
     Active Substance: AMIODARONE
     Dosage: 200 MG, QD
     Route: 065
  151. CORDAREX [Concomitant]
     Active Substance: AMIODARONE
     Dosage: 200 MG, QD
     Route: 065
  152. CORDAREX [Concomitant]
     Active Substance: AMIODARONE
     Dosage: 200 MG, QD
     Route: 065
  153. CORDAREX [Concomitant]
     Active Substance: AMIODARONE
     Dosage: 200 MG, QD
     Route: 065
  154. CORDAREX [Concomitant]
     Active Substance: AMIODARONE
     Dosage: 200 MG, QD
     Route: 065
  155. CORDAREX [Concomitant]
     Active Substance: AMIODARONE
     Dosage: 200 MG, QD
     Route: 065
  156. CORDAREX [Concomitant]
     Active Substance: AMIODARONE
     Dosage: 200 MG, QD
     Route: 065
  157. CORDAREX [Concomitant]
     Active Substance: AMIODARONE
     Dosage: 200 MG, QD
     Route: 065
  158. CORDAREX [Concomitant]
     Active Substance: AMIODARONE
     Dosage: 200 MG, QD
     Route: 065
  159. CORDAREX [Concomitant]
     Active Substance: AMIODARONE
     Route: 065
  160. CORDAREX [Concomitant]
     Active Substance: AMIODARONE
     Route: 065
  161. CORDAREX [Concomitant]
     Active Substance: AMIODARONE
     Route: 065
  162. CORDAREX [Concomitant]
     Active Substance: AMIODARONE
     Route: 065
  163. CORDAREX [Concomitant]
     Active Substance: AMIODARONE
     Route: 065
  164. CORDAREX [Concomitant]
     Active Substance: AMIODARONE
     Route: 065
  165. CORDAREX [Concomitant]
     Active Substance: AMIODARONE
     Route: 065
  166. CORDAREX [Concomitant]
     Active Substance: AMIODARONE
     Route: 065
  167. CORDAREX [Concomitant]
     Active Substance: AMIODARONE
     Route: 065
  168. CORDAREX [Concomitant]
     Active Substance: AMIODARONE
     Route: 065
  169. CORDAREX [Concomitant]
     Active Substance: AMIODARONE
     Route: 065
  170. CORDAREX [Concomitant]
     Active Substance: AMIODARONE
     Route: 065
  171. CORDAREX [Concomitant]
     Active Substance: AMIODARONE
     Route: 065
  172. CORDAREX [Concomitant]
     Active Substance: AMIODARONE
     Route: 065
  173. CORDAREX [Concomitant]
     Active Substance: AMIODARONE
     Route: 065
  174. CORDAREX [Concomitant]
     Active Substance: AMIODARONE
     Route: 065
  175. CORDAREX [Concomitant]
     Active Substance: AMIODARONE
     Route: 065
  176. CORDAREX [Concomitant]
     Active Substance: AMIODARONE
     Route: 065
  177. CORDAREX [Concomitant]
     Active Substance: AMIODARONE
     Route: 065
  178. CORDAREX [Concomitant]
     Active Substance: AMIODARONE
     Route: 065
  179. CORDAREX [Concomitant]
     Active Substance: AMIODARONE
     Route: 065
  180. CORDAREX [Concomitant]
     Active Substance: AMIODARONE
     Route: 065
  181. CORDAREX [Concomitant]
     Active Substance: AMIODARONE
     Route: 065
  182. CORDAREX [Concomitant]
     Active Substance: AMIODARONE
     Route: 065
  183. CORDAREX [Concomitant]
     Active Substance: AMIODARONE
     Route: 065
  184. CORDAREX [Concomitant]
     Active Substance: AMIODARONE
     Route: 065
  185. CORDAREX [Concomitant]
     Active Substance: AMIODARONE
     Route: 065
  186. CORDAREX [Concomitant]
     Active Substance: AMIODARONE
     Route: 065
  187. CORDAREX [Concomitant]
     Active Substance: AMIODARONE
     Route: 065
  188. CORDAREX [Concomitant]
     Active Substance: AMIODARONE
     Route: 065
  189. CORDAREX [Concomitant]
     Active Substance: AMIODARONE
     Route: 065
  190. CORDAREX [Concomitant]
     Active Substance: AMIODARONE
     Route: 065
  191. CORDAREX [Concomitant]
     Active Substance: AMIODARONE
     Route: 065
  192. CORDAREX [Concomitant]
     Active Substance: AMIODARONE
     Route: 065
  193. CORDAREX [Concomitant]
     Active Substance: AMIODARONE
     Route: 065
  194. CORDAREX [Concomitant]
     Active Substance: AMIODARONE
     Route: 065
  195. CORDAREX [Concomitant]
     Active Substance: AMIODARONE
     Route: 065
  196. CORDAREX [Concomitant]
     Active Substance: AMIODARONE
     Route: 065
  197. ENOXAPARIN [Concomitant]
     Active Substance: ENOXAPARIN
     Dosage: 0.5 MG, QD
     Route: 065
  198. ENOXAPARIN [Concomitant]
     Active Substance: ENOXAPARIN
     Dosage: 0.6 MG, QD
     Route: 065
  199. ENOXAPARIN [Concomitant]
     Active Substance: ENOXAPARIN
     Dosage: 0.6 MG, QD
     Route: 065
  200. ENOXAPARIN [Concomitant]
     Active Substance: ENOXAPARIN
     Dosage: 0.6 MG, QD
     Route: 065
  201. ENOXAPARIN [Concomitant]
     Active Substance: ENOXAPARIN
     Dosage: 0.6 MG, QD
     Route: 065
  202. ENOXAPARIN [Concomitant]
     Active Substance: ENOXAPARIN
     Dosage: 0.6 MG, QD
     Route: 065
  203. ENOXAPARIN [Concomitant]
     Active Substance: ENOXAPARIN
     Dosage: 0.6 MG, QD
     Route: 065
  204. ENOXAPARIN [Concomitant]
     Active Substance: ENOXAPARIN
     Dosage: 0.6 MG, QD
     Route: 065
  205. ENOXAPARIN [Concomitant]
     Active Substance: ENOXAPARIN
     Dosage: 0.6 MG, QD
     Route: 065
  206. ENOXAPARIN [Concomitant]
     Active Substance: ENOXAPARIN
     Dosage: 0.6 MG, QD
     Route: 065
  207. ENOXAPARIN [Concomitant]
     Active Substance: ENOXAPARIN
     Dosage: UNK
     Route: 065
  208. ENOXAPARIN [Concomitant]
     Active Substance: ENOXAPARIN
     Dosage: UNK
     Route: 065
  209. ENOXAPARIN [Concomitant]
     Active Substance: ENOXAPARIN
     Indication: Product used for unknown indication
     Dosage: 5 MG, QD
     Route: 065
  210. ENOXAPARIN [Concomitant]
     Active Substance: ENOXAPARIN
     Dosage: 5 MG, QD
     Route: 065
  211. ENOXAPARIN [Concomitant]
     Active Substance: ENOXAPARIN
     Dosage: 5 MG, QD
     Route: 065
  212. ENOXAPARIN [Concomitant]
     Active Substance: ENOXAPARIN
     Dosage: 5 MG, QD
     Route: 065
  213. ENOXAPARIN [Concomitant]
     Active Substance: ENOXAPARIN
     Route: 065
  214. ENOXAPARIN [Concomitant]
     Active Substance: ENOXAPARIN
     Route: 065
  215. ENOXAPARIN [Concomitant]
     Active Substance: ENOXAPARIN
     Route: 065
  216. ENOXAPARIN [Concomitant]
     Active Substance: ENOXAPARIN
     Route: 065
  217. ENOXAPARIN [Concomitant]
     Active Substance: ENOXAPARIN
     Route: 065
  218. ENOXAPARIN [Concomitant]
     Active Substance: ENOXAPARIN
     Route: 065
  219. FOLIC ACID [Concomitant]
     Active Substance: FOLIC ACID
     Indication: Product used for unknown indication
     Route: 065
  220. FOLIC ACID [Concomitant]
     Active Substance: FOLIC ACID
     Route: 065
     Dates: start: 20170124
  221. FOLIC ACID [Concomitant]
     Active Substance: FOLIC ACID
     Route: 065
  222. FOLIC ACID [Concomitant]
     Active Substance: FOLIC ACID
     Route: 065
  223. FOLIC ACID [Concomitant]
     Active Substance: FOLIC ACID
     Route: 065
  224. NADROPARIN CALCIUM [Concomitant]
     Active Substance: NADROPARIN CALCIUM
     Indication: Product used for unknown indication
     Dosage: 5700 IU, QD
     Route: 059
  225. NADROPARIN CALCIUM [Concomitant]
     Active Substance: NADROPARIN CALCIUM
     Dosage: 5700 IU, QD
     Route: 058
  226. NADROPARIN CALCIUM [Concomitant]
     Active Substance: NADROPARIN CALCIUM
     Dosage: 5700 IU, QD
     Route: 058
  227. NADROPARIN CALCIUM [Concomitant]
     Active Substance: NADROPARIN CALCIUM
     Dosage: 5700 IU, QD
     Route: 058
  228. NADROPARIN CALCIUM [Concomitant]
     Active Substance: NADROPARIN CALCIUM
     Dosage: 5700 IU, QD
     Route: 058
  229. NADROPARIN CALCIUM [Concomitant]
     Active Substance: NADROPARIN CALCIUM
     Dosage: 5700 IU, QD
     Route: 065
  230. NADROPARIN CALCIUM [Concomitant]
     Active Substance: NADROPARIN CALCIUM
     Dosage: DAILY DOSE: 5700 IU INTERNATIONAL UNIT(S) EVERY DAYS
     Route: 058
  231. NADROPARIN CALCIUM [Concomitant]
     Active Substance: NADROPARIN CALCIUM
     Route: 065
  232. NADROPARIN CALCIUM [Concomitant]
     Active Substance: NADROPARIN CALCIUM
     Route: 065
  233. NADROPARIN CALCIUM [Concomitant]
     Active Substance: NADROPARIN CALCIUM
     Route: 065
  234. NADROPARIN CALCIUM [Concomitant]
     Active Substance: NADROPARIN CALCIUM
     Route: 065
  235. NADROPARIN CALCIUM [Concomitant]
     Active Substance: NADROPARIN CALCIUM
     Route: 065
  236. NADROPARIN CALCIUM [Concomitant]
     Active Substance: NADROPARIN CALCIUM
     Route: 065
  237. NADROPARIN CALCIUM [Concomitant]
     Active Substance: NADROPARIN CALCIUM
     Route: 065
  238. NADROPARIN CALCIUM [Concomitant]
     Active Substance: NADROPARIN CALCIUM
     Route: 065
  239. NADROPARIN CALCIUM [Concomitant]
     Active Substance: NADROPARIN CALCIUM
     Route: 065
  240. NADROPARIN CALCIUM [Concomitant]
     Active Substance: NADROPARIN CALCIUM
     Route: 065
  241. NADROPARIN CALCIUM [Concomitant]
     Active Substance: NADROPARIN CALCIUM
     Route: 065
  242. NADROPARIN CALCIUM [Concomitant]
     Active Substance: NADROPARIN CALCIUM
     Route: 065
  243. NADROPARIN CALCIUM [Concomitant]
     Active Substance: NADROPARIN CALCIUM
     Route: 065
  244. NADROPARIN CALCIUM [Concomitant]
     Active Substance: NADROPARIN CALCIUM
     Route: 065
  245. NADROPARIN CALCIUM [Concomitant]
     Active Substance: NADROPARIN CALCIUM
     Route: 065
  246. NADROPARIN CALCIUM [Concomitant]
     Active Substance: NADROPARIN CALCIUM
     Route: 065
  247. NADROPARIN CALCIUM [Concomitant]
     Active Substance: NADROPARIN CALCIUM
     Route: 065
  248. NADROPARIN CALCIUM [Concomitant]
     Active Substance: NADROPARIN CALCIUM
     Route: 065
  249. NADROPARIN CALCIUM [Concomitant]
     Active Substance: NADROPARIN CALCIUM
     Route: 065
  250. NADROPARIN CALCIUM [Concomitant]
     Active Substance: NADROPARIN CALCIUM
     Route: 065
  251. NADROPARIN CALCIUM [Concomitant]
     Active Substance: NADROPARIN CALCIUM
     Route: 065
  252. NADROPARIN CALCIUM [Concomitant]
     Active Substance: NADROPARIN CALCIUM
     Route: 065
  253. NADROPARIN CALCIUM [Concomitant]
     Active Substance: NADROPARIN CALCIUM
     Route: 065
  254. LEVOSIMENDAN [Concomitant]
     Active Substance: LEVOSIMENDAN
     Route: 065
  255. LEVOSIMENDAN [Concomitant]
     Active Substance: LEVOSIMENDAN
     Route: 065
  256. LEVOSIMENDAN [Concomitant]
     Active Substance: LEVOSIMENDAN
     Route: 065
  257. LEVOSIMENDAN [Concomitant]
     Active Substance: LEVOSIMENDAN
     Route: 065
  258. LEVOSIMENDAN [Concomitant]
     Active Substance: LEVOSIMENDAN
     Route: 065
  259. LEVOSIMENDAN [Concomitant]
     Active Substance: LEVOSIMENDAN
     Route: 065
  260. LEVOSIMENDAN [Concomitant]
     Active Substance: LEVOSIMENDAN
     Route: 065
  261. LEVOSIMENDAN [Concomitant]
     Active Substance: LEVOSIMENDAN
     Route: 065
  262. LEVOSIMENDAN [Concomitant]
     Active Substance: LEVOSIMENDAN
     Route: 065
  263. LEVOSIMENDAN [Concomitant]
     Active Substance: LEVOSIMENDAN
     Route: 065
  264. LEVOSIMENDAN [Concomitant]
     Active Substance: LEVOSIMENDAN
     Route: 065
  265. LEVOSIMENDAN [Concomitant]
     Active Substance: LEVOSIMENDAN
     Route: 065
  266. LEVOSIMENDAN [Concomitant]
     Active Substance: LEVOSIMENDAN
     Route: 065
  267. LEVOSIMENDAN [Concomitant]
     Active Substance: LEVOSIMENDAN
     Route: 065
  268. LEVOSIMENDAN [Concomitant]
     Active Substance: LEVOSIMENDAN
     Route: 065
  269. LEVOSIMENDAN [Concomitant]
     Active Substance: LEVOSIMENDAN
     Route: 065
  270. LEVOSIMENDAN [Concomitant]
     Active Substance: LEVOSIMENDAN
     Route: 065
  271. LEVOSIMENDAN [Concomitant]
     Active Substance: LEVOSIMENDAN
     Indication: Product used for unknown indication
     Route: 065
  272. LEVOSIMENDAN [Concomitant]
     Active Substance: LEVOSIMENDAN
     Route: 065
     Dates: start: 201611, end: 201611
  273. LEVOSIMENDAN [Concomitant]
     Active Substance: LEVOSIMENDAN
     Route: 065
     Dates: start: 201611, end: 201611
  274. LEVOSIMENDAN [Concomitant]
     Active Substance: LEVOSIMENDAN
     Route: 065
     Dates: start: 201611, end: 201611
  275. LEVOSIMENDAN [Concomitant]
     Active Substance: LEVOSIMENDAN
     Route: 065
     Dates: start: 201611, end: 201611
  276. LEVOSIMENDAN [Concomitant]
     Active Substance: LEVOSIMENDAN
     Route: 065
     Dates: start: 201611, end: 201611
  277. LEVOSIMENDAN [Concomitant]
     Active Substance: LEVOSIMENDAN
     Route: 065
     Dates: start: 201611, end: 201611
  278. LEVOSIMENDAN [Concomitant]
     Active Substance: LEVOSIMENDAN
     Route: 065
     Dates: start: 201611, end: 201611
  279. LEVOSIMENDAN [Concomitant]
     Active Substance: LEVOSIMENDAN
     Route: 065
     Dates: start: 201611, end: 201611
  280. LEVOSIMENDAN [Concomitant]
     Active Substance: LEVOSIMENDAN
     Route: 065
     Dates: start: 201611, end: 201611
  281. LEVOSIMENDAN [Concomitant]
     Active Substance: LEVOSIMENDAN
     Route: 065
     Dates: start: 201611, end: 201611
  282. LEVOSIMENDAN [Concomitant]
     Active Substance: LEVOSIMENDAN
     Route: 065
     Dates: start: 201611, end: 201611
  283. LEVOSIMENDAN [Concomitant]
     Active Substance: LEVOSIMENDAN
     Route: 065
     Dates: start: 201611, end: 201611
  284. LEVOSIMENDAN [Concomitant]
     Active Substance: LEVOSIMENDAN
     Route: 065
     Dates: start: 201611, end: 201611
  285. LEVOSIMENDAN [Concomitant]
     Active Substance: LEVOSIMENDAN
     Route: 065
     Dates: start: 201611, end: 201611
  286. LEVOSIMENDAN [Concomitant]
     Active Substance: LEVOSIMENDAN
     Route: 065
     Dates: start: 201611, end: 201611
  287. LEVOSIMENDAN [Concomitant]
     Active Substance: LEVOSIMENDAN
     Route: 065
     Dates: start: 201611, end: 201611
  288. LEVOSIMENDAN [Concomitant]
     Active Substance: LEVOSIMENDAN
     Route: 065
  289. LEVOSIMENDAN [Concomitant]
     Active Substance: LEVOSIMENDAN
     Route: 065
  290. LEVOSIMENDAN [Concomitant]
     Active Substance: LEVOSIMENDAN
     Route: 065
  291. MAGALDRATE [Concomitant]
     Active Substance: MAGALDRATE
     Dosage: 1600 MG, QD
     Route: 048
  292. MAGALDRATE [Concomitant]
     Active Substance: MAGALDRATE
     Indication: Product used for unknown indication
     Dosage: 4800 MG, QD
     Route: 048
  293. MAGALDRATE [Concomitant]
     Active Substance: MAGALDRATE
     Route: 065
  294. MAGALDRATE [Concomitant]
     Active Substance: MAGALDRATE
     Route: 065
  295. MAGALDRATE [Concomitant]
     Active Substance: MAGALDRATE
     Route: 065
  296. MAGALDRATE [Concomitant]
     Active Substance: MAGALDRATE
     Route: 065
  297. MAGALDRATE [Concomitant]
     Active Substance: MAGALDRATE
     Route: 065
  298. MAGALDRATE [Concomitant]
     Active Substance: MAGALDRATE
     Route: 065
  299. MAGALDRATE [Concomitant]
     Active Substance: MAGALDRATE
     Route: 065
  300. PREDNISOLONE [Concomitant]
     Active Substance: PREDNISOLONE
     Indication: Product used for unknown indication
     Route: 065
  301. Riopan [Concomitant]
     Indication: Product used for unknown indication
     Dosage: 1600 MG, QD
     Route: 048
  302. Riopan [Concomitant]
     Dosage: 4800 MG, QD
     Route: 048
  303. Riopan [Concomitant]
     Route: 065
  304. Riopan [Concomitant]
     Route: 065
  305. SODIUM CHLORIDE [Concomitant]
     Active Substance: SODIUM CHLORIDE
     Indication: Product used for unknown indication
     Dosage: 1 DOSAGE FORM, QD
     Route: 065
  306. SODIUM CHLORIDE [Concomitant]
     Active Substance: SODIUM CHLORIDE
     Dosage: 3 DOSAGE FORM, QD
     Route: 065
  307. SODIUM CHLORIDE [Concomitant]
     Active Substance: SODIUM CHLORIDE
     Dosage: UNK, QD
     Route: 065
  308. SODIUM CHLORIDE [Concomitant]
     Active Substance: SODIUM CHLORIDE
     Dosage: UNK, QD
     Route: 065
  309. SODIUM CHLORIDE [Concomitant]
     Active Substance: SODIUM CHLORIDE
     Dosage: UNK, QD
     Route: 065
  310. SODIUM CHLORIDE [Concomitant]
     Active Substance: SODIUM CHLORIDE
     Dosage: UNK, QD
     Route: 065
  311. SODIUM CHLORIDE [Concomitant]
     Active Substance: SODIUM CHLORIDE
     Dosage: UNK, QD
     Route: 065
  312. SODIUM CHLORIDE [Concomitant]
     Active Substance: SODIUM CHLORIDE
     Dosage: UNK, QD
     Route: 065
  313. SODIUM CHLORIDE [Concomitant]
     Active Substance: SODIUM CHLORIDE
     Dosage: UNK, QD
     Route: 065
  314. SODIUM CHLORIDE [Concomitant]
     Active Substance: SODIUM CHLORIDE
     Dosage: UNK, QD
     Route: 065
  315. SODIUM CHLORIDE [Concomitant]
     Active Substance: SODIUM CHLORIDE
     Dosage: UNK, QD
     Route: 065
  316. SODIUM CHLORIDE [Concomitant]
     Active Substance: SODIUM CHLORIDE
     Dosage: UNK, QD
     Route: 065
  317. SODIUM CHLORIDE [Concomitant]
     Active Substance: SODIUM CHLORIDE
     Dosage: UNK, QD
     Route: 065
  318. SODIUM CHLORIDE [Concomitant]
     Active Substance: SODIUM CHLORIDE
     Dosage: UNK, QD
     Route: 065
  319. SODIUM CHLORIDE [Concomitant]
     Active Substance: SODIUM CHLORIDE
     Dosage: UNK, QD
     Route: 065
  320. SODIUM CHLORIDE [Concomitant]
     Active Substance: SODIUM CHLORIDE
     Dosage: UNK, QD
     Route: 065
  321. SODIUM CHLORIDE [Concomitant]
     Active Substance: SODIUM CHLORIDE
     Dosage: UNK, QD
     Route: 065
  322. SODIUM CHLORIDE [Concomitant]
     Active Substance: SODIUM CHLORIDE
     Dosage: UNK, QD
     Route: 065
  323. SODIUM CHLORIDE [Concomitant]
     Active Substance: SODIUM CHLORIDE
     Dosage: UNK, QD
     Route: 065
  324. SODIUM CHLORIDE [Concomitant]
     Active Substance: SODIUM CHLORIDE
     Dosage: UNK, QD
     Route: 065
  325. SODIUM CHLORIDE [Concomitant]
     Active Substance: SODIUM CHLORIDE
     Dosage: UNK, QD
     Route: 065
  326. SODIUM CHLORIDE [Concomitant]
     Active Substance: SODIUM CHLORIDE
     Dosage: UNK, QD
     Route: 065
  327. SODIUM CHLORIDE [Concomitant]
     Active Substance: SODIUM CHLORIDE
     Dosage: UNK, QD
     Route: 065
  328. SODIUM CHLORIDE [Concomitant]
     Active Substance: SODIUM CHLORIDE
     Dosage: UNK, QD
     Route: 065
  329. SODIUM CHLORIDE [Concomitant]
     Active Substance: SODIUM CHLORIDE
     Dosage: UNK, QD
     Route: 065
  330. SODIUM CHLORIDE [Concomitant]
     Active Substance: SODIUM CHLORIDE
     Dosage: UNK, QD
     Route: 065
  331. SODIUM CHLORIDE [Concomitant]
     Active Substance: SODIUM CHLORIDE
     Dosage: UNK, QD
     Route: 065
  332. SODIUM CHLORIDE [Concomitant]
     Active Substance: SODIUM CHLORIDE
     Dosage: UNK, QD
     Route: 065
  333. SODIUM CHLORIDE [Concomitant]
     Active Substance: SODIUM CHLORIDE
     Dosage: UNK, QD
     Route: 065
  334. SODIUM CHLORIDE [Concomitant]
     Active Substance: SODIUM CHLORIDE
     Dosage: UNK, QD
     Route: 065
  335. SODIUM CHLORIDE [Concomitant]
     Active Substance: SODIUM CHLORIDE
     Dosage: UNK, QD
     Route: 065
  336. SODIUM CHLORIDE [Concomitant]
     Active Substance: SODIUM CHLORIDE
     Dosage: UNK, QD
     Route: 065
  337. SODIUM CHLORIDE [Concomitant]
     Active Substance: SODIUM CHLORIDE
     Dosage: UNK, QD
     Route: 065
  338. SODIUM CHLORIDE [Concomitant]
     Active Substance: SODIUM CHLORIDE
     Dosage: UNK, QD
     Route: 065
  339. SODIUM CHLORIDE [Concomitant]
     Active Substance: SODIUM CHLORIDE
     Route: 065
  340. SODIUM CHLORIDE [Concomitant]
     Active Substance: SODIUM CHLORIDE
     Route: 065
  341. SODIUM CHLORIDE [Concomitant]
     Active Substance: SODIUM CHLORIDE
     Route: 065
  342. SODIUM CHLORIDE [Concomitant]
     Active Substance: SODIUM CHLORIDE
     Route: 065
  343. SODIUM CHLORIDE [Concomitant]
     Active Substance: SODIUM CHLORIDE
     Route: 065
  344. SODIUM CHLORIDE [Concomitant]
     Active Substance: SODIUM CHLORIDE
     Route: 065
  345. SODIUM CHLORIDE [Concomitant]
     Active Substance: SODIUM CHLORIDE
     Route: 065
  346. SODIUM CHLORIDE [Concomitant]
     Active Substance: SODIUM CHLORIDE
     Route: 065
  347. SODIUM CHLORIDE [Concomitant]
     Active Substance: SODIUM CHLORIDE
     Route: 065
  348. SODIUM CHLORIDE [Concomitant]
     Active Substance: SODIUM CHLORIDE
     Route: 065
  349. SODIUM CHLORIDE [Concomitant]
     Active Substance: SODIUM CHLORIDE
     Route: 065
  350. SODIUM CHLORIDE [Concomitant]
     Active Substance: SODIUM CHLORIDE
     Route: 065
  351. SODIUM CHLORIDE [Concomitant]
     Active Substance: SODIUM CHLORIDE
     Route: 065
  352. SODIUM CHLORIDE [Concomitant]
     Active Substance: SODIUM CHLORIDE
     Route: 065
  353. SODIUM CHLORIDE [Concomitant]
     Active Substance: SODIUM CHLORIDE
     Route: 065
  354. TORSEMIDE [Concomitant]
     Active Substance: TORSEMIDE
     Indication: Product used for unknown indication
     Dosage: 1 DF, QD
     Route: 048
  355. TORSEMIDE [Concomitant]
     Active Substance: TORSEMIDE
     Dosage: 5 MG, QD
     Route: 048

REACTIONS (71)
  - Wound infection pseudomonas [Recovering/Resolving]
  - Femoral hernia incarcerated [Recovered/Resolved]
  - Lymphatic fistula [Recovered/Resolved]
  - Seroma [Unknown]
  - Eructation [Unknown]
  - Pulmonary hypertension [Recovered/Resolved]
  - Hiatus hernia [Unknown]
  - Inflammatory marker increased [Recovered/Resolved]
  - Faecaloma [Unknown]
  - Cardiogenic shock [Unknown]
  - Hepatic cyst [Unknown]
  - Mitral valve incompetence [Unknown]
  - Gait disturbance [Recovering/Resolving]
  - Coronary artery disease [Unknown]
  - Cardiovascular disorder [Unknown]
  - Hyperkalaemia [Unknown]
  - Postoperative wound infection [Recovered/Resolved]
  - Groin pain [Not Recovered/Not Resolved]
  - Urinary tract infection [Recovering/Resolving]
  - Diverticulum intestinal [Unknown]
  - Left ventricular dysfunction [Recovered/Resolved]
  - Arthralgia [Unknown]
  - Pulmonary hypertension [Recovering/Resolving]
  - Vomiting [Unknown]
  - Eructation [Unknown]
  - Groin pain [Not Recovered/Not Resolved]
  - Dyspepsia [Unknown]
  - Joint dislocation [Recovered/Resolved]
  - Oedema peripheral [Unknown]
  - Joint dislocation [Recovered/Resolved]
  - Haematuria [Recovering/Resolving]
  - Escherichia infection [Unknown]
  - Diverticulum intestinal [Recovering/Resolving]
  - Joint dislocation [Recovered/Resolved]
  - Fall [Recovered/Resolved]
  - Anuria [Recovered/Resolved]
  - Groin pain [Unknown]
  - Tachyarrhythmia [Unknown]
  - Escherichia infection [Unknown]
  - Haemarthrosis [Unknown]
  - Joint dislocation [Recovered/Resolved]
  - Acute kidney injury [Unknown]
  - Aortic valve stenosis [Unknown]
  - General physical health deterioration [Unknown]
  - Aplastic anaemia [Unknown]
  - Pancreatic steatosis [Unknown]
  - Fall [Unknown]
  - Gastrointestinal haemorrhage [Recovered/Resolved]
  - Hyponatraemia [Unknown]
  - Urinary retention [Unknown]
  - Wound dehiscence [Recovered/Resolved]
  - Osteopenia [Recovered/Resolved]
  - Aortic arteriosclerosis [Unknown]
  - Diverticulum intestinal [Unknown]
  - Tricuspid valve incompetence [Unknown]
  - Joint dislocation [Unknown]
  - Peripheral swelling [Recovered/Resolved]
  - Myocardial infarction [Recovered/Resolved]
  - Impaired healing [Recovered/Resolved]
  - Arterial haemorrhage [Recovered/Resolved]
  - Myelodysplastic syndrome [Unknown]
  - Oedema peripheral [Unknown]
  - Arterial haemorrhage [Recovered/Resolved]
  - Anaemia [Recovered/Resolved]
  - Dyspepsia [Unknown]
  - Haematuria [Recovering/Resolving]
  - Gastrointestinal haemorrhage [Recovered/Resolved]
  - Abdominal discomfort [Unknown]
  - Decreased appetite [Unknown]
  - Dyspnoea [Unknown]
  - Eructation [Unknown]

NARRATIVE: CASE EVENT DATE: 20111101
